FAERS Safety Report 5316337-8 (Version None)
Quarter: 2007Q2

REPORT INFORMATION
  Report Type: 
  Country: None (occurrence: None)
  Receive Date: 20070430
  Receipt Date: 20070418
  Transmission Date: 20071010
  Serious: Yes (Death, Hospitalization)
  Sender: FDA-Public Use
  Company Number: 155442USA

PATIENT
  Age: 36 Year
  Sex: Female

DRUGS (1)
  1. PROPOFOL [Suspect]
     Indication: CONVULSION
     Dosage: INTRAVENOUS (NOT OTHERWISE SPECIFIED)
     Route: 042

REACTIONS (23)
  - ARRHYTHMIA [None]
  - BLOOD CREATININE INCREASED [None]
  - BLOOD TRIGLYCERIDES INCREASED [None]
  - BRADYARRHYTHMIA [None]
  - BRAIN HYPOXIA [None]
  - BRONCHOPNEUMONIA [None]
  - CARDIAC ARREST [None]
  - CARDIAC FAILURE [None]
  - CEREBRAL ISCHAEMIA [None]
  - ELECTROCARDIOGRAM T WAVE AMPLITUDE DECREASED [None]
  - ELECTROMECHANICAL DISSOCIATION [None]
  - EPILEPSY [None]
  - HAEMODIALYSIS [None]
  - HEPATIC CONGESTION [None]
  - HYPOTENSION [None]
  - LACTIC ACIDOSIS [None]
  - MUSCLE SWELLING [None]
  - PROPOFOL INFUSION SYNDROME [None]
  - PULMONARY CONGESTION [None]
  - RHABDOMYOLYSIS [None]
  - SPLEEN CONGESTION [None]
  - TACHYCARDIA [None]
  - URINE OUTPUT DECREASED [None]
